FAERS Safety Report 16588402 (Version 2)
Quarter: 2019Q3

REPORT INFORMATION
  Report Type: Spontaneous
  Country: BG (occurrence: BG)
  Receive Date: 20190717
  Receipt Date: 20190730
  Transmission Date: 20191004
  Serious: Yes (Hospitalization)
  Sender: FDA-Public Use
  Company Number: BG-BAXTER-2019BAX013879

PATIENT
  Age: 60 Year
  Sex: Female

DRUGS (1)
  1. ENDOXAN 1 G POWDER FOR SOLUTION FOR INJECTION [Suspect]
     Active Substance: CYCLOPHOSPHAMIDE
     Indication: MYELOID LEUKAEMIA
     Route: 065

REACTIONS (1)
  - Cardiac dysfunction [Recovering/Resolving]
